FAERS Safety Report 12815937 (Version 1)
Quarter: 2016Q4

REPORT INFORMATION
  Report Type: Spontaneous
  Country: US (occurrence: US)
  Receive Date: 20161005
  Receipt Date: 20161005
  Transmission Date: 20170207
  Serious: Yes (Other)
  Sender: FDA-Public Use
  Company Number: None

PATIENT
  Age: 51 Year
  Sex: Female

DRUGS (9)
  1. DIVALPROEX [Concomitant]
     Active Substance: DIVALPROEX SODIUM
  2. RITUXAN [Concomitant]
     Active Substance: RITUXIMAB
  3. BACLOFEN. [Concomitant]
     Active Substance: BACLOFEN
  4. QUETIAPINE. [Concomitant]
     Active Substance: QUETIAPINE
  5. RIZATIPTAN [Concomitant]
  6. TROSIUMG [Concomitant]
  7. AMPYRA [Suspect]
     Active Substance: DALFAMPRIDINE
     Indication: MULTIPLE SCLEROSIS
     Route: 048
     Dates: start: 201101
  8. TAMSULOSIN [Concomitant]
     Active Substance: TAMSULOSIN
  9. OXYBUTYNIN [Concomitant]
     Active Substance: OXYBUTYNIN

REACTIONS (1)
  - Escherichia urinary tract infection [None]

NARRATIVE: CASE EVENT DATE: 20160911
